FAERS Safety Report 10552798 (Version 1)
Quarter: 2014Q4

REPORT INFORMATION
  Report Type: Spontaneous
  Country: US (occurrence: US)
  Receive Date: 20141029
  Receipt Date: 20141029
  Transmission Date: 20150529
  Serious: No
  Sender: FDA-Public Use
  Company Number: US-MYLANLABS-2013S1023791

PATIENT
  Age: 60 Year
  Sex: Female
  Weight: 73.48 kg

DRUGS (5)
  1. RISPERIDONE TABLETS, USP [Suspect]
     Active Substance: RISPERIDONE
     Indication: INSOMNIA
     Dosage: .25 MG,AM
     Route: 048
     Dates: start: 201309, end: 201309
  2. RISPERIDONE TABLETS, USP [Suspect]
     Active Substance: RISPERIDONE
     Indication: INSOMNIA
     Dosage: .5 MG,HS
     Route: 048
     Dates: start: 201309, end: 201309
  3. RISPERIDONE TABLETS, USP [Suspect]
     Active Substance: RISPERIDONE
     Indication: OFF LABEL USE
     Dosage: .5 MG,HS
     Route: 048
     Dates: start: 201309, end: 201309
  4. TRAZODONE [Concomitant]
     Active Substance: TRAZODONE HYDROCHLORIDE
     Indication: INSOMNIA
     Dosage: 50 MG,HS
     Route: 048
  5. RISPERIDONE TABLETS, USP [Suspect]
     Active Substance: RISPERIDONE
     Indication: OFF LABEL USE
     Dosage: .25 MG,AM
     Route: 048
     Dates: start: 201309, end: 201309

REACTIONS (3)
  - Arthralgia [Recovering/Resolving]
  - Joint swelling [Recovering/Resolving]
  - Gait disturbance [Recovering/Resolving]

NARRATIVE: CASE EVENT DATE: 201309
